FAERS Safety Report 15713160 (Version 1)
Quarter: 2018Q4

REPORT INFORMATION
  Report Type: Spontaneous
  Country: US (occurrence: US)
  Receive Date: 20181129
  Receipt Date: 20181129
  Transmission Date: 20190205
  Serious: Yes (Hospitalization)
  Sender: FDA-Public Use
  Company Number: None

PATIENT
  Age: 68 Year
  Sex: Male
  Weight: 93.89 kg

DRUGS (2)
  1. WARFARIN [Suspect]
     Active Substance: WARFARIN
     Indication: PORTAL VEIN THROMBOSIS
     Route: 048
     Dates: start: 20180606, end: 20180617
  2. ENOXAPARIN [Suspect]
     Active Substance: ENOXAPARIN
     Indication: PORTAL VEIN THROMBOSIS
     Route: 058
     Dates: start: 20180606, end: 20180617

REACTIONS (1)
  - Abdominal wall haematoma [None]

NARRATIVE: CASE EVENT DATE: 20180617
